FAERS Safety Report 8396306-4 (Version None)
Quarter: 2012Q2

REPORT INFORMATION
  Report Type: 
  Country: None (occurrence: None)
  Receive Date: 20120530
  Receipt Date: 20120518
  Transmission Date: 20120825
  Serious: Yes (Hospitalization, Other)
  Sender: FDA-Public Use
  Company Number: US-ELI_LILLY_AND_COMPANY-US201007004339

PATIENT
  Sex: Female

DRUGS (27)
  1. ASPIRIN [Concomitant]
     Dosage: 81 MG, DAILY (1/D)
     Route: 048
  2. CELEXA [Concomitant]
     Dosage: 20 MG, EACH EVENING
     Route: 048
  3. COLACE [Concomitant]
     Dosage: 100 MG, 2/D
  4. ZOCOR [Concomitant]
     Dosage: 20 MG, EACH EVENING
     Route: 048
  5. VALIUM [Concomitant]
     Indication: MUSCLE SPASMS
     Dosage: 2 MG, AS NEEDED
     Route: 048
  6. FORTEO [Suspect]
     Dosage: 20 UG, QD
  7. LASIX [Concomitant]
     Dosage: 20 MG, 2/D
  8. K-TAB [Concomitant]
     Dosage: 20 MEQ, 4/D
     Route: 048
  9. TYLENOL (CAPLET) [Concomitant]
     Indication: PYREXIA
     Dosage: 650 MG, EVERY 4 HRS
  10. SELENIUM [Concomitant]
     Dosage: 1 MG, EACH MORNING
     Route: 048
  11. CRITIC-AID [Concomitant]
     Dosage: UNK, AS NEEDED
     Route: 061
  12. CALTRATE + VITAMIN D [Concomitant]
     Dosage: UNK, DAILY (1/D)
     Route: 048
  13. CLARITIN [Concomitant]
     Dosage: 10 MG, DAILY (1/D)
  14. DESYREL [Concomitant]
     Dosage: 50 MG, EACH EVENING
  15. VITAMIN E [Concomitant]
     Dosage: 400 U, EACH EVENING
  16. XANAX [Concomitant]
     Indication: ANXIETY
     Dosage: 0.25 MG, EVERY 8 HRS
     Route: 048
  17. FORTEO [Suspect]
     Indication: OSTEOPOROSIS
     Dosage: 20 UG, QD
     Route: 058
     Dates: start: 20100528
  18. MIACALCIN [Concomitant]
     Dosage: UNK, DAILY (1/D)
     Route: 055
  19. MAGNESIUM CITRATE [Concomitant]
     Dosage: UNK, DAILY (1/D)
     Route: 048
  20. ZOFRAN [Concomitant]
     Dosage: UNK, AS NEEDED
     Route: 042
  21. ZESTRIL [Concomitant]
     Dosage: 5 MG, DAILY (1/D)
  22. TYLENOL (CAPLET) [Concomitant]
     Dosage: 650 MG, AS NEEDED
     Route: 048
  23. NORCO [Concomitant]
     Indication: PAIN
     Dosage: UNK D/F, AS NEEDED
     Route: 048
  24. VITAMIN A [Concomitant]
     Dosage: 10000 U, DAILY (1/D)
     Route: 048
  25. MOM [Concomitant]
     Dosage: UNK, AS NEEDED
  26. PERCOCET [Concomitant]
     Dosage: UNK D/F, AS NEEDED
  27. PREDNISONE TAB [Concomitant]
     Dosage: 10 MG, DAILY (1/D)
     Dates: end: 20100728

REACTIONS (10)
  - WALKING DISABILITY [None]
  - HERPES ZOSTER [None]
  - HIP ARTHROPLASTY [None]
  - DECREASED APPETITE [None]
  - PAIN [None]
  - SPINAL COMPRESSION FRACTURE [None]
  - SPINAL FRACTURE [None]
  - ASTHENIA [None]
  - SPINAL COLUMN STENOSIS [None]
  - PNEUMONIA [None]
